FAERS Safety Report 12894245 (Version 2)
Quarter: 2020Q4

REPORT INFORMATION
  Report Type: Report from Study
  Country: DE (occurrence: JP)
  Receive Date: 20161028
  Receipt Date: 20201118
  Transmission Date: 20210113
  Serious: Yes (Other)
  Sender: FDA-Public Use
  Company Number: JP-ELI_LILLY_AND_COMPANY-JP201605009073

PATIENT
  Age: 68 Year
  Sex: Male

DRUGS (1)
  1. CETUXIMAB. [Suspect]
     Active Substance: CETUXIMAB
     Indication: SQUAMOUS CELL CARCINOMA OF HEAD AND NECK
     Dosage: UNK UNK, UNKNOWN
     Route: 041
     Dates: start: 20141215, end: 20150203

REACTIONS (18)
  - Dysphagia [Recovered/Resolved]
  - Dry skin [Recovered/Resolved]
  - Hypomagnesaemia [Recovered/Resolved]
  - Dehydration [Unknown]
  - Dysgeusia [Recovered/Resolved]
  - Hypocalcaemia [Recovered/Resolved]
  - Hyponatraemia [Recovered/Resolved]
  - Pharyngeal inflammation [Recovered/Resolved]
  - Dermatitis acneiform [Recovered/Resolved]
  - Blood urea increased [Recovering/Resolving]
  - Hyperkalaemia [Recovered/Resolved]
  - Hypophagia [Unknown]
  - Radiation skin injury [Recovered/Resolved]
  - Stomatitis [Recovered/Resolved]
  - Dry mouth [Recovered/Resolved]
  - Dysphonia [Recovered/Resolved]
  - Decreased appetite [Recovered/Resolved]
  - Blood alkaline phosphatase increased [Recovered/Resolved]

NARRATIVE: CASE EVENT DATE: 20141215
